FAERS Safety Report 24685357 (Version 1)
Quarter: 2024Q4

REPORT INFORMATION
  Report Type: Spontaneous
  Country: US (occurrence: None)
  Receive Date: 20241127
  Receipt Date: 20241127
  Transmission Date: 20250114
  Serious: Yes (Hospitalization)
  Sender: Public
  Company Number: None

PATIENT
  Age: 69 Year
  Sex: Male
  Weight: 104 kg

DRUGS (1)
  1. METFORMIN HYDROCHLORIDE [Suspect]
     Active Substance: METFORMIN HYDROCHLORIDE
     Indication: Diabetes mellitus
     Dosage: 1.00 UNK - UNKNOWN TWICE  DAY ORAL
     Route: 048
     Dates: end: 20240615

REACTIONS (2)
  - Blood lactic acid [None]
  - Hypophagia [None]

NARRATIVE: CASE EVENT DATE: 20240615
